FAERS Safety Report 4327776-6 (Version None)
Quarter: 2004Q1

REPORT INFORMATION
  Report Type: 
  Country: None (occurrence: None)
  Receive Date: 20040331
  Receipt Date: 20040326
  Transmission Date: 20041129
  Serious: Yes (Disabling, Other)
  Sender: FDA-Public Use
  Company Number: 200412301US

PATIENT
  Sex: 0

DRUGS (1)
  1. LOVENOX [Suspect]
     Indication: ATRIAL FIBRILLATION
     Dates: start: 20040221

REACTIONS (4)
  - MENINGITIS [None]
  - PARALYSIS [None]
  - POST PROCEDURAL COMPLICATION [None]
  - SPINAL HAEMATOMA [None]
